APPROVED DRUG PRODUCT: CALCIUM CHLORIDE 10% IN PLASTIC CONTAINER
Active Ingredient: CALCIUM CHLORIDE
Strength: 100MG/ML
Dosage Form/Route: INJECTABLE;INJECTION
Application: N021117 | Product #001 | TE Code: AP
Applicant: HOSPIRA INC
Approved: Jan 28, 2000 | RLD: Yes | RS: Yes | Type: RX